FAERS Safety Report 14222949 (Version 1)
Quarter: 2017Q4

REPORT INFORMATION
  Report Type: Spontaneous
  Country: US (occurrence: US)
  Receive Date: 20171124
  Receipt Date: 20171124
  Transmission Date: 20180321
  Serious: No
  Sender: FDA-Public Use
  Company Number: US-JNJFOC-20171008292

PATIENT
  Sex: Female

DRUGS (1)
  1. REMICADE [Suspect]
     Active Substance: INFLIXIMAB
     Indication: COLITIS MICROSCOPIC
     Route: 042

REACTIONS (3)
  - Product use in unapproved indication [Unknown]
  - Infusion related reaction [Unknown]
  - Off label use [Unknown]
